FAERS Safety Report 9296622 (Version 4)
Quarter: 2014Q3

REPORT INFORMATION
  Report Type: Spontaneous
  Country: US (occurrence: None)
  Receive Date: 20130515
  Receipt Date: 20140917
  Transmission Date: 20150326
  Serious: Yes (Hospitalization)
  Sender: FDA-Public Use
  Company Number: 2013SGN00252

PATIENT
  Age: 65 Year
  Sex: Male
  Weight: 86.1 kg

DRUGS (3)
  1. DIGOXIN. [Concomitant]
     Active Substance: DIGOXIN
  2. ACETAMINOPHEN. [Concomitant]
     Active Substance: ACETAMINOPHEN
  3. BRENTUXIMAB VEDOTIN [Suspect]
     Active Substance: BRENTUXIMAB VEDOTIN
     Indication: NON-HODGKIN^S LYMPHOMA
     Route: 042
     Dates: start: 20130418, end: 20130418

REACTIONS (7)
  - Oropharyngeal pain [None]
  - Superinfection [None]
  - Pneumonia [None]
  - Rhinorrhoea [None]
  - Febrile neutropenia [None]
  - Molluscipoxvirus test positive [None]
  - Asthenia [None]

NARRATIVE: CASE EVENT DATE: 20130429
